FAERS Safety Report 7399710-6 (Version None)
Quarter: 2011Q1

REPORT INFORMATION
  Report Type: 
  Country: None (occurrence: None)
  Receive Date: 20110329
  Receipt Date: 20110322
  Transmission Date: 20110831
  Serious: Yes (Death, Hospitalization, Other)
  Sender: FDA-Public Use
  Company Number: 2010US004328

PATIENT
  Age: 65 Year
  Sex: Male

DRUGS (17)
  1. ALEFACEPT (ACEFACEPT) INJECTION [Suspect]
     Indication: RENAL TRANSPLANT
     Dosage: 7.5 MG, TOTAL DOSE, IV NOS
     Route: 042
     Dates: start: 20091120, end: 20091120
  2. ALEFACEPT (ACEFACEPT) INJECTION [Suspect]
     Indication: RENAL TRANSPLANT
     Dosage: 7.5 MG, TOTAL DOSE, IV NOS
     Route: 042
     Dates: start: 20091123, end: 20091123
  3. LIPITOR [Concomitant]
  4. LANTUS [Concomitant]
  5. JANUVIA [Concomitant]
  6. ASPIRIN [Concomitant]
  7. MELPHALAN [Concomitant]
  8. ALEFACEPT (ACEFACEPT) INJECTION [Suspect]
     Indication: RENAL TRANSPLANT
     Dosage: 15 MG, WEEKLY, SUBCUTANEOUS
     Route: 058
     Dates: start: 20091127, end: 20100310
  9. PREDNISONE [Concomitant]
  10. INSULIN [Concomitant]
  11. TRAZODONE [Concomitant]
  12. SERTRALINE [Concomitant]
  13. CORTICOSTEROID NOS [Concomitant]
  14. PROGRAF [Suspect]
     Indication: RENAL TRANSPLANT
     Dosage: 2.5 MG, UID/QD, ORAL
     Route: 048
     Dates: start: 20091120
  15. METOPROLOL [Concomitant]
  16. FAMVIR [Concomitant]
  17. VELCADE [Concomitant]

REACTIONS (11)
  - PSEUDOMONAS TEST POSITIVE [None]
  - FEBRILE NEUTROPENIA [None]
  - PNEUMONIA MYCOPLASMAL [None]
  - PULMONARY HYPERTENSION [None]
  - CANDIDA TEST POSITIVE [None]
  - THROMBOCYTOPENIA [None]
  - WHITE BLOOD CELL COUNT INCREASED [None]
  - LEUKOPENIA [None]
  - STREPTOCOCCAL BACTERAEMIA [None]
  - RESPIRATORY FAILURE [None]
  - ASPERGILLOSIS [None]
